FAERS Safety Report 6229718 (Version 2)
Quarter: 2013Q2

REPORT INFORMATION
  Report Type: Spontaneous
  Country: US (occurrence: US)
  Receive Date: 20070202
  Receipt Date: 20130506
  Transmission Date: 20140414
  Serious: Yes (Other)
  Sender: FDA-Public Use
  Company Number: US-JNJFOC-20070200389

PATIENT
  Age: 38 Year
  Sex: Female
  Weight: 116.12 kg

DRUGS (34)
  1. IBUPROFEN 800MG [Suspect]
     Indication: PRODUCT USED FOR UNKNOWN INDICATION
     Dosage: ^FROM THE TIME SHE WAS A TEENAGER^
     Route: 048
     Dates: end: 2002
  2. NAPROSYN [Suspect]
     Indication: PRODUCT USED FOR UNKNOWN INDICATION
     Route: 065
  3. CELEBREX [Suspect]
     Indication: INFLAMMATION
     Route: 065
     Dates: end: 2002
  4. SINGULAR [Concomitant]
  5. LISINOPRIL [Concomitant]
  6. LIPITOR [Concomitant]
  7. CLARITIN [Concomitant]
  8. FLONASE [Concomitant]
  9. LORTAB [Concomitant]
  10. VALIUM [Concomitant]
  11. ZOLOFT [Concomitant]
  12. AMITRIPTYLINE [Concomitant]
  13. NEURONTIN [Concomitant]
  14. BACLOFEN [Concomitant]
  15. VITAMIN B12 [Concomitant]
  16. ROBAXIN [Concomitant]
  17. SERAVENT [Concomitant]
  18. FLOVENT [Concomitant]
  19. OXYGEN [Concomitant]
  20. ALBUTEROL [Concomitant]
  21. NEXIUM [Concomitant]
  22. ZELNORM [Concomitant]
  23. FIBROLAX [Concomitant]
  24. DOCUSATE SODIUM [Concomitant]
  25. REGLAN [Concomitant]
  26. DYAZIDE [Concomitant]
  27. BABY ASPIRIN [Concomitant]
  28. VITAMIN E [Concomitant]
  29. ONE A DAY WEIGHT SMART [Concomitant]
  30. VITAMIN C [Concomitant]
  31. UNKNOWN GENTLE LAXATIVE [Concomitant]
  32. MOBIC [Concomitant]
  33. MIRAPEX [Concomitant]
  34. LEVOTHYROXINE SODIUM [Concomitant]

REACTIONS (7)
  - Intracranial aneurysm [Unknown]
  - Erosive oesophagitis [Not Recovered/Not Resolved]
  - Dyspepsia [Unknown]
  - Nausea [Unknown]
  - Swelling [Unknown]
  - Local swelling [None]
  - Local swelling [None]
